FAERS Safety Report 7215977-9 (Version None)
Quarter: 2011Q1

REPORT INFORMATION
  Report Type: 
  Country: None (occurrence: None)
  Receive Date: 20110107
  Receipt Date: 20110104
  Transmission Date: 20110831
  Serious: Yes (Death, Other)
  Sender: FDA-Public Use
  Company Number: GB-ASTRAZENECA-2011SE00457

PATIENT
  Age: 49 Year
  Sex: Male

DRUGS (3)
  1. MEROPENEM [Suspect]
     Indication: B-CELL LYMPHOMA
     Route: 042
  2. VANCOMYCIN [Concomitant]
  3. AMPHOTERICIN B [Concomitant]

REACTIONS (5)
  - KLEBSIELLA INFECTION [None]
  - NEUTROPENIA [None]
  - HAEMATOLOGICAL MALIGNANCY [None]
  - PYREXIA [None]
  - ENTEROCOCCUS TEST POSITIVE [None]
